FAERS Safety Report 16561994 (Version 1)
Quarter: 2019Q3

REPORT INFORMATION
  Report Type: Spontaneous
  Country: None (occurrence: PL)
  Receive Date: 20190711
  Receipt Date: 20190711
  Transmission Date: 20191004
  Serious: Yes (Other)
  Sender: FDA-Public Use
  Company Number: PL-LABORATOIRE HRA PHARMA-2070688

PATIENT
  Sex: Female

DRUGS (1)
  1. ELLA [Suspect]
     Active Substance: ULIPRISTAL ACETATE
     Indication: PRODUCT USED FOR UNKNOWN INDICATION
     Route: 048

REACTIONS (5)
  - Feeling abnormal [Unknown]
  - Nausea [Unknown]
  - Chest pain [Unknown]
  - Haemorrhage [Unknown]
  - Abdominal pain [Unknown]
